FAERS Safety Report 8756614 (Version 1)
Quarter: 2012Q4

REPORT INFORMATION
  Report Type: 
  Country: US (occurrence: US)
  Receive Date: 20120828
  Receipt Date: 20120828
  Transmission Date: 20130627
  Serious: No
  Sender: FDA-Public Use
  Company Number: US-PFIZER INC-K201101046

PATIENT
  Age: 57 Year
  Sex: Female
  Weight: 58.05 kg

DRUGS (1)
  1. SONATA [Suspect]
     Indication: SLEEP DISORDER
     Dosage: 10 mg, 1x/day
     Route: 048
     Dates: start: 20090821

REACTIONS (5)
  - Hypersensitivity [Recovering/Resolving]
  - Burning sensation [Recovering/Resolving]
  - Pruritus [Recovering/Resolving]
  - Heart rate increased [Recovering/Resolving]
  - Irritability [Recovering/Resolving]
